FAERS Safety Report 8837574 (Version 1)
Quarter: 2012Q4

REPORT INFORMATION
  Report Type: 
  Country: US (occurrence: US)
  Receive Date: 20121012
  Receipt Date: 20121012
  Transmission Date: 20130627
  Serious: Yes (Hospitalization)
  Sender: FDA-Public Use
  Company Number: US-INCYTE CORPORATION-2012IN001995

PATIENT
  Age: 55 Year
  Sex: Female

DRUGS (1)
  1. JAKAFI [Suspect]
     Dosage: 10 mg, bid
     Route: 048
     Dates: start: 20120712, end: 20121003

REACTIONS (1)
  - Hospitalisation [Unknown]
